FAERS Safety Report 7181923-X (Version None)
Quarter: 2010Q4

REPORT INFORMATION
  Report Type: 
  Country: None (occurrence: None)
  Receive Date: 20101221
  Receipt Date: 20100504
  Transmission Date: 20110411
  Serious: No
  Sender: FDA-Public Use
  Company Number: US-AMGEN-TCS410510

PATIENT

DRUGS (2)
  1. ENBREL [Suspect]
     Indication: PSORIASIS
     Dosage: 25 MG, 3 TIMES/WK
     Route: 058
  2. ENBREL [Suspect]
     Indication: PSORIATIC ARTHROPATHY

REACTIONS (5)
  - CARPAL TUNNEL SYNDROME [None]
  - HYPOAESTHESIA [None]
  - MOBILITY DECREASED [None]
  - PAIN [None]
  - PARAESTHESIA [None]
